FAERS Safety Report 5265458-7 (Version None)
Quarter: 2007Q1

REPORT INFORMATION
  Report Type: 
  Country: None (occurrence: None)
  Receive Date: 20070314
  Receipt Date: 20070306
  Transmission Date: 20070707
  Serious: Yes (Other)
  Sender: FDA-Public Use
  Company Number: US-PFIZER INC-2006150553

PATIENT
  Sex: Male
  Weight: 86.2 kg

DRUGS (4)
  1. CHANTIX [Suspect]
     Indication: SMOKING CESSATION THERAPY
     Dates: start: 20061103, end: 20070226
  2. ACETYLSALICYLIC ACID SRT [Concomitant]
  3. VITAMIN E [Concomitant]
     Dosage: DAILY DOSE:400
  4. CRESTOR [Concomitant]

REACTIONS (4)
  - BLOOD TRIGLYCERIDES INCREASED [None]
  - HYPERSENSITIVITY [None]
  - RASH GENERALISED [None]
  - WEIGHT INCREASED [None]
